FAERS Safety Report 7592039-2 (Version None)
Quarter: 2011Q3

REPORT INFORMATION
  Report Type: 
  Country: None (occurrence: None)
  Receive Date: 20110705
  Receipt Date: 20110705
  Transmission Date: 20111222
  Serious: No
  Sender: FDA-Public Use
  Company Number: None

PATIENT
  Sex: Male
  Weight: 76.8 kg

DRUGS (4)
  1. CAMPATH [Suspect]
     Dosage: 90 MG
  2. CYCLOPHOSPHAMIDE [Suspect]
     Dosage: 6798 MG
  3. PENTOSTATIN [Suspect]
     Dosage: 45.5 MG
  4. RITUXIMAB (MOAB C2B8 AND CD20, CHIMERIC) [Suspect]
     Dosage: 5063 MG

REACTIONS (9)
  - INFECTION [None]
  - CHILLS [None]
  - WHITE BLOOD CELL COUNT DECREASED [None]
  - LYMPHOPENIA [None]
  - SINUS CONGESTION [None]
  - HAEMOGLOBIN DECREASED [None]
  - HAEMATOCRIT DECREASED [None]
  - NEUTROPHIL COUNT DECREASED [None]
  - PYREXIA [None]
